FAERS Safety Report 25806951 (Version 1)
Quarter: 2025Q3

REPORT INFORMATION
  Report Type: Other
  Country: EU (occurrence: EU)
  Receive Date: 20250916
  Receipt Date: 20250916
  Transmission Date: 20251020
  Serious: Yes (Hospitalization, Other)
  Sender: ANI
  Company Number: EU-ANIPHARMA-030517

PATIENT
  Age: 35 Year
  Sex: Female

DRUGS (14)
  1. METOCLOPRAMIDE [Suspect]
     Active Substance: METOCLOPRAMIDE
     Indication: Premedication
  2. EPINEPHRINE [Concomitant]
     Active Substance: EPINEPHRINE
     Indication: Cardiac arrest
  3. AMIODARONE [Concomitant]
     Active Substance: AMIODARONE
     Indication: Cardiac arrest
  4. METFORMIN [Concomitant]
     Active Substance: METFORMIN HYDROCHLORIDE
     Indication: Monogenic diabetes
  5. GLICLAZIDE [Concomitant]
     Active Substance: GLICLAZIDE
     Indication: Monogenic diabetes
  6. EMPAGLIFLOZIN [Concomitant]
     Active Substance: EMPAGLIFLOZIN
     Indication: Monogenic diabetes
  7. DABRAFENIB [Concomitant]
     Active Substance: DABRAFENIB
     Indication: BRAF gene mutation
     Dates: start: 202403, end: 20240516
  8. TRAMETINIB [Concomitant]
     Active Substance: TRAMETINIB
     Indication: BRAF gene mutation
     Dates: start: 202403, end: 20240516
  9. ACETAMINOPHEN [Concomitant]
     Active Substance: ACETAMINOPHEN
     Indication: Premedication
  10. METHYLPREDNISOLONE [Concomitant]
     Active Substance: METHYLPREDNISOLONE
     Indication: Myocarditis
  11. TRAMETINIB [Concomitant]
     Active Substance: TRAMETINIB
     Indication: BRAF gene mutation
     Dates: start: 20240530, end: 20240602
  12. TRAMETINIB [Concomitant]
     Active Substance: TRAMETINIB
     Indication: BRAF gene mutation
     Dates: start: 20240606
  13. DABRAFENIB [Concomitant]
     Active Substance: DABRAFENIB
     Indication: BRAF gene mutation
     Dates: start: 20240530, end: 20240602
  14. DABRAFENIB [Concomitant]
     Active Substance: DABRAFENIB
     Indication: BRAF gene mutation
     Dates: start: 20240606

REACTIONS (1)
  - Ventricular fibrillation [Not Recovered/Not Resolved]
